FAERS Safety Report 8560006-8 (Version None)
Quarter: 2012Q3

REPORT INFORMATION
  Report Type: 
  Country: None (occurrence: None)
  Receive Date: 20120802
  Receipt Date: 20120727
  Transmission Date: 20120928
  Serious: Yes (Other)
  Sender: FDA-Public Use
  Company Number: VE-PFIZER INC-2012158151

PATIENT
  Age: 88 Year
  Sex: Female

DRUGS (2)
  1. CADUET [Suspect]
     Indication: HYPERTENSION
     Dosage: [AMLODIPINE BESILATE 5 MG/ ATORVASTATIN CALCIUM 40 MG], UNK
     Route: 048
     Dates: start: 20120701
  2. CADUET [Suspect]
     Indication: HYPERCHOLESTEROLAEMIA
     Dosage: [AMLODIPINE BESILATE 5 MG/ ATORVASTATIN CALCIUM 40 MG], UNK
     Route: 048
     Dates: start: 20080101, end: 20120601

REACTIONS (2)
  - BREAST INJURY [None]
  - FALL [None]
